FAERS Safety Report 7845761 (Version 3)
Quarter: 2012Q4

REPORT INFORMATION
  Report Type: Report from Study
  Country: DE (occurrence: DE)
  Receive Date: 20110308
  Receipt Date: 20121219
  Transmission Date: 20130627
  Serious: Yes (Death, Hospitalization)
  Sender: FDA-Public Use
  Company Number: DE-JNJFOC-20110107387

PATIENT
  Age: 70 Year
  Sex: Male
  Weight: 64 kg

DRUGS (5)
  1. PALEXIA RETARD [Suspect]
     Indication: PAIN
     Dosage: Dose: 50mg, 2 in 1 day.
     Route: 065
     Dates: start: 20101022, end: 20101123
  2. AGGRENOX [Concomitant]
  3. RAMIPRIL COMP [Concomitant]
  4. MARCUMAR [Concomitant]
  5. PREGABALIN [Concomitant]
     Indication: PRODUCT USED FOR UNKNOWN INDICATION
     Route: 065

REACTIONS (4)
  - Cerebral infarction [Fatal]
  - Fall [Unknown]
  - Asthenia [Not Recovered/Not Resolved]
  - Hypoaesthesia [Unknown]
